FAERS Safety Report 15408392 (Version 1)
Quarter: 2018Q3

REPORT INFORMATION
  Report Type: Spontaneous
  Country: IT (occurrence: IT)
  Receive Date: 20180920
  Receipt Date: 20180920
  Transmission Date: 20181010
  Serious: Yes (Other)
  Sender: FDA-Public Use
  Company Number: IT-TEVA-2018-IT-956593

PATIENT
  Age: 57 Year
  Sex: Female

DRUGS (1)
  1. LANSOPRAZOLO TEVA ITALIA [Suspect]
     Active Substance: LANSOPRAZOLE
     Indication: CHEMOTHERAPY
     Dosage: 30 MILLIGRAM DAILY;
     Route: 048
     Dates: start: 20180711, end: 20180717

REACTIONS (2)
  - Abdominal pain upper [Recovered/Resolved]
  - Diarrhoea [Recovered/Resolved]

NARRATIVE: CASE EVENT DATE: 20180717
